FAERS Safety Report 4883985-9 (Version None)
Quarter: 2006Q1

REPORT INFORMATION
  Report Type: 
  Country: None (occurrence: None)
  Receive Date: 20060112
  Receipt Date: 20060103
  Transmission Date: 20060701
  Serious: Yes (Other)
  Sender: FDA-Public Use
  Company Number: 200511861BBE

PATIENT
  Age: 58 Year
  Sex: Male

DRUGS (5)
  1. GAMUNEX [Suspect]
     Dosage: 40 G, TOTAL DAILY, INTRAVENOUS
     Route: 042
  2. CLINDAMYCIN [Concomitant]
  3. DILAUDID [Concomitant]
  4. PENCILLIN 4M [Concomitant]
  5. TYLENOL (CAPLET) [Concomitant]

REACTIONS (3)
  - BLOOD PRESSURE DECREASED [None]
  - HALLUCINATION, VISUAL [None]
  - VOMITING [None]
